FAERS Safety Report 11411623 (Version 2)
Quarter: 2015Q3

REPORT INFORMATION
  Report Type: Spontaneous
  Country: US (occurrence: US)
  Receive Date: 20150821
  Receipt Date: 20150903
  Transmission Date: 20151125
  Serious: No
  Sender: FDA-Public Use
  Company Number: US-ELI_LILLY_AND_COMPANY-US201111002174

PATIENT
  Sex: Male

DRUGS (8)
  1. HUMULIN N [Suspect]
     Active Substance: INSULIN HUMAN
     Dosage: 50 U, EACH EVENING
  2. HUMULIN N [Suspect]
     Active Substance: INSULIN HUMAN
     Dosage: 30 U, OTHER
  3. HUMALOG [Suspect]
     Active Substance: INSULIN LISPRO
     Indication: DIABETES MELLITUS
     Dosage: 30 U, EACH EVENING
  4. HUMULIN N [Suspect]
     Active Substance: INSULIN HUMAN
     Indication: DIABETES MELLITUS
     Dosage: 35 U, EACH MORNING
  5. HUMULIN N [Suspect]
     Active Substance: INSULIN HUMAN
     Dosage: 30 U, OTHER
  6. HUMULIN N [Suspect]
     Active Substance: INSULIN HUMAN
     Dosage: 35 U, EACH MORNING
  7. HUMALOG [Suspect]
     Active Substance: INSULIN LISPRO
     Dosage: 30 U, EACH EVENING
  8. HUMULIN N [Suspect]
     Active Substance: INSULIN HUMAN
     Dosage: 50 U, EACH EVENING

REACTIONS (7)
  - Dysgeusia [Unknown]
  - Paraesthesia [Unknown]
  - Blood glucose decreased [Unknown]
  - Thinking abnormal [Unknown]
  - Hypoglycaemia [Unknown]
  - Tremor [Unknown]
  - Metamorphopsia [Unknown]
